FAERS Safety Report 13511806 (Version 2)
Quarter: 2017Q2

REPORT INFORMATION
  Report Type: Spontaneous
  Country: US (occurrence: US)
  Receive Date: 20170504
  Receipt Date: 20170524
  Transmission Date: 20170830
  Serious: No
  Sender: FDA-Public Use
  Company Number: US-PFIZER INC-2017194897

PATIENT
  Sex: Female

DRUGS (1)
  1. XELJANZ [Suspect]
     Active Substance: TOFACITINIB CITRATE
     Dosage: 5 MG, UNK

REACTIONS (16)
  - Cough [Unknown]
  - Dry eye [Unknown]
  - Pyrexia [Unknown]
  - Dry mouth [Unknown]
  - Weight decreased [Unknown]
  - Musculoskeletal stiffness [Recovered/Resolved]
  - Arthralgia [Unknown]
  - Synovial disorder [Unknown]
  - Musculoskeletal discomfort [Unknown]
  - Pain in extremity [Unknown]
  - Musculoskeletal pain [Unknown]
  - Crepitations [Unknown]
  - Viral infection [Unknown]
  - Oedema peripheral [Unknown]
  - Limb discomfort [Unknown]
  - Cardiomegaly [Unknown]
